FAERS Safety Report 8486639 (Version 6)
Quarter: 2013Q1

REPORT INFORMATION
  Report Type: Spontaneous
  Country: US (occurrence: None)
  Receive Date: 20120413
  Receipt Date: 20130325
  Transmission Date: 20140127
  Serious: Yes (Hospitalization)
  Sender: FDA-Public Use
  Company Number: KAD201203-000188

PATIENT
  Age: 57 Year
  Sex: Female

DRUGS (7)
  1. RIBAVIRIN [Suspect]
     Indication: HEPATITIS C
     Dosage: 1200 MG (600 MG, TWICE A DAY)
     Route: 048
     Dates: start: 20110705, end: 20120208
  2. ABT-267 [Suspect]
     Indication: HEPATITIS C
     Dosage: (BLINDED)
     Route: 048
     Dates: start: 20110705, end: 20110927
  3. PEGINTERFERON [Suspect]
     Indication: HEPATITIS C
     Route: 058
     Dates: start: 20110705, end: 20120208
  4. FLONASE (FLUTICASONE PROPIONATE) [Concomitant]
  5. KLIOGEST COMBI PATCH (ESTRADIOL, NORETHISTERONE ACETATE) [Concomitant]
  6. LEXAPRO (ESCITALOPRAM OXALATE) [Concomitant]
  7. PHENERGAN (PROMETHAZINE HYDROCHLORIDE, DIBROPROPAMIDINE, ISETIONATE) [Concomitant]

REACTIONS (4)
  - Muscular weakness [None]
  - Arthralgia [None]
  - Malnutrition [None]
  - Dehydration [None]
